FAERS Safety Report 6019737-6 (Version None)
Quarter: 2008Q4

REPORT INFORMATION
  Report Type: 
  Country: None (occurrence: None)
  Receive Date: 20081224
  Receipt Date: 20081212
  Transmission Date: 20090506
  Serious: Yes (Hospitalization, Other)
  Sender: FDA-Public Use
  Company Number: ES-PFIZER INC-2008100266

PATIENT

DRUGS (3)
  1. LYRICA [Suspect]
     Indication: GENERALISED ANXIETY DISORDER
     Dosage: 150 MG, UNK
     Route: 048
     Dates: start: 20080601, end: 20081101
  2. TRANKIMAZIN [Suspect]
     Dosage: 3 MG, 1X/DAY
  3. DULOXETINE [Suspect]
     Dosage: UNK

REACTIONS (16)
  - ANOREXIA [None]
  - ASTHENIA [None]
  - CARDIAC DISORDER [None]
  - CARDIO-RESPIRATORY ARREST [None]
  - COMA [None]
  - DYSKINESIA [None]
  - HYPERHIDROSIS [None]
  - INCORRECT DOSE ADMINISTERED [None]
  - INSOMNIA [None]
  - METABOLIC ACIDOSIS [None]
  - MYOCLONIC EPILEPSY [None]
  - NERVOUSNESS [None]
  - PULMONARY OEDEMA [None]
  - RESTLESSNESS [None]
  - STATUS EPILEPTICUS [None]
  - STRESS CARDIOMYOPATHY [None]
